FAERS Safety Report 18349959 (Version 1)
Quarter: 2020Q4

REPORT INFORMATION
  Report Type: Report from Study
  Country: VN (occurrence: VN)
  Receive Date: 20201006
  Receipt Date: 20201006
  Transmission Date: 20210114
  Serious: Yes (Hospitalization)
  Sender: FDA-Public Use
  Company Number: PHHY2018VN190001

PATIENT
  Age: 41 Year
  Sex: Female

DRUGS (22)
  1. SOLU-MEDROL [Concomitant]
     Active Substance: METHYLPREDNISOLONE SODIUM SUCCINATE
     Dosage: 80 MG, QD
     Route: 042
     Dates: start: 20181116, end: 20181116
  2. TRANEXAMIC [Concomitant]
     Active Substance: TRANEXAMIC ACID
     Indication: IMMUNE THROMBOCYTOPENIA
     Dosage: 0.25 MG, UNK
     Route: 065
  3. RACIPER [Concomitant]
     Active Substance: ESOMEPRAZOLE MAGNESIUM
     Dosage: 20 MG, QD
     Route: 048
     Dates: start: 20181114, end: 20181212
  4. RACIPER [Concomitant]
     Active Substance: ESOMEPRAZOLE MAGNESIUM
     Dosage: 20 MG, QD
     Route: 048
     Dates: start: 20181224
  5. HYDROCORTISONE. [Concomitant]
     Active Substance: HYDROCORTISONE
     Indication: IMMUNE THROMBOCYTOPENIA
     Dosage: 100 MG, QD
     Route: 042
     Dates: start: 20181117, end: 20181117
  6. REVOLADE [Suspect]
     Active Substance: ELTROMBOPAG
     Dosage: 50 MG, QD
     Route: 048
     Dates: start: 20181214, end: 20190118
  7. IMUREL [Concomitant]
     Active Substance: AZATHIOPRINE SODIUM
     Indication: IMMUNE THROMBOCYTOPENIA
     Dosage: 50 MG, BID
     Route: 048
     Dates: start: 20181116, end: 20181116
  8. MEDROL [Concomitant]
     Active Substance: METHYLPREDNISOLONE
     Dosage: 16 MG, QD
     Route: 048
     Dates: start: 20181224
  9. PHOSPHALUGEL [Concomitant]
     Active Substance: ALUMINUM PHOSPHATE
     Dosage: 1 DF, TID
     Route: 048
     Dates: start: 20181114, end: 20181212
  10. RACIPER [Concomitant]
     Active Substance: ESOMEPRAZOLE MAGNESIUM
     Indication: GASTROOESOPHAGEAL REFLUX DISEASE
     Dosage: 20 MG, QD
     Route: 048
     Dates: start: 20181107
  11. FOLIC ACID. [Concomitant]
     Active Substance: FOLIC ACID
     Dosage: 5 MG, QD
     Route: 048
     Dates: start: 20181224
  12. REVOLADE [Suspect]
     Active Substance: ELTROMBOPAG
     Dosage: 25 MG, QD
     Route: 048
     Dates: start: 20190119, end: 20190305
  13. TRANEXAMIC [Concomitant]
     Active Substance: TRANEXAMIC ACID
     Dosage: 500 MG, BID
     Route: 042
     Dates: start: 20181107
  14. TRANEXAMIC [Concomitant]
     Active Substance: TRANEXAMIC ACID
     Dosage: 500 MG, BID
     Route: 042
     Dates: start: 20181120, end: 20181124
  15. GLICLAZIDE [Concomitant]
     Active Substance: GLICLAZIDE
     Indication: DIABETES MELLITUS
     Dosage: 30 MG, QD
     Route: 048
     Dates: start: 20181208
  16. REVOLADE [Suspect]
     Active Substance: ELTROMBOPAG
     Indication: IMMUNE THROMBOCYTOPENIA
     Dosage: 25 MG, QD
     Route: 048
     Dates: start: 20181117, end: 20181213
  17. IMUREL [Concomitant]
     Active Substance: AZATHIOPRINE SODIUM
     Indication: GASTROOESOPHAGEAL REFLUX DISEASE
     Dosage: 50 MG, BID
     Route: 048
     Dates: start: 20181107
  18. TRANEXAMIC [Concomitant]
     Active Substance: TRANEXAMIC ACID
     Dosage: 500 MG, BID
     Route: 042
     Dates: start: 20181213, end: 20181227
  19. FOLIC ACID. [Concomitant]
     Active Substance: FOLIC ACID
     Indication: IMMUNE THROMBOCYTOPENIA
     Dosage: 5 MG, QD
     Route: 048
     Dates: start: 20181201, end: 20181206
  20. SOLU-MEDROL [Concomitant]
     Active Substance: METHYLPREDNISOLONE SODIUM SUCCINATE
     Indication: IMMUNE THROMBOCYTOPENIA
     Dosage: 80 MG, QD
     Route: 042
     Dates: start: 20181107
  21. MEDROL [Concomitant]
     Active Substance: METHYLPREDNISOLONE
     Indication: IMMUNE THROMBOCYTOPENIA
     Dosage: 16 MG, QD
     Route: 048
     Dates: start: 20181117, end: 20181212
  22. PHOSPHALUGEL [Concomitant]
     Active Substance: ALUMINUM PHOSPHATE
     Indication: GASTROOESOPHAGEAL REFLUX DISEASE
     Dosage: 1 DF, TID
     Route: 048
     Dates: start: 20181107

REACTIONS (8)
  - Immune thrombocytopenia [Recovered/Resolved]
  - Condition aggravated [Recovered/Resolved]
  - Headache [Recovered/Resolved]
  - Infusion site extravasation [Recovered/Resolved]
  - Vision blurred [Recovered/Resolved]
  - Gingival bleeding [Recovered/Resolved]
  - Headache [Recovered/Resolved]
  - Vaginal haemorrhage [Recovered/Resolved]

NARRATIVE: CASE EVENT DATE: 20181120
